FAERS Safety Report 6762115-2 (Version None)
Quarter: 2010Q2

REPORT INFORMATION
  Report Type: 
  Country: None (occurrence: None)
  Receive Date: 20100609
  Receipt Date: 20100531
  Transmission Date: 20101027
  Serious: Yes (Disabling, Other)
  Sender: FDA-Public Use
  Company Number: GB-PFIZER INC-2010067931

PATIENT
  Age: 30 Year
  Sex: Female
  Weight: 60 kg

DRUGS (2)
  1. CHAMPIX [Suspect]
     Indication: SMOKING CESSATION THERAPY
     Dosage: 500 MG, 2X/DAY
     Route: 048
     Dates: start: 20100101, end: 20100501
  2. IMPLANON [Interacting]
     Indication: CONTRACEPTION
     Dosage: UNK
     Route: 058
     Dates: start: 20090801

REACTIONS (2)
  - DRUG INTERACTION [None]
  - POLYMENORRHOEA [None]
